FAERS Safety Report 8420274-X (Version None)
Quarter: 2012Q2

REPORT INFORMATION
  Report Type: 
  Country: None (occurrence: None)
  Receive Date: 20120607
  Receipt Date: 20120525
  Transmission Date: 20120825
  Serious: No
  Sender: FDA-Public Use
  Company Number: US-ASTRAZENECA-2012SE34151

PATIENT
  Sex: Male

DRUGS (1)
  1. VIMOVO [Suspect]
     Indication: ARTHRALGIA
     Route: 048

REACTIONS (2)
  - HICCUPS [None]
  - OFF LABEL USE [None]
